FAERS Safety Report 7632875-7 (Version None)
Quarter: 2011Q3

REPORT INFORMATION
  Report Type: 
  Country: None (occurrence: None)
  Receive Date: 20110725
  Receipt Date: 20110712
  Transmission Date: 20111222
  Serious: Yes (Hospitalization, Other)
  Sender: FDA-Public Use
  Company Number: PHHY2011AU43047

PATIENT
  Sex: Male

DRUGS (6)
  1. LITHIUM CARBONATE [Concomitant]
     Dosage: 1350 MG, NOCTE
     Route: 048
  2. CLOZAPINE [Suspect]
     Dosage: 375 MG
     Route: 048
  3. OLANZAPINE [Concomitant]
     Dosage: 15 MG, UNK
  4. VALPROATE SODIUM [Concomitant]
     Dosage: 2 G, NOCTE
     Route: 048
  5. CLOZAPINE [Suspect]
     Indication: SCHIZOPHRENIA
     Dosage: 350 MG
     Route: 048
     Dates: start: 20020103
  6. CLOZAPINE [Suspect]
     Dosage: 650 MG, NOCTE
     Route: 048

REACTIONS (7)
  - TROPONIN INCREASED [None]
  - ELECTROCARDIOGRAM T WAVE AMPLITUDE DECREASED [None]
  - DYSPNOEA [None]
  - LEFT ATRIAL DILATATION [None]
  - OBESITY [None]
  - LEFT VENTRICULAR HYPERTROPHY [None]
  - BODY MASS INDEX INCREASED [None]
